FAERS Safety Report 20883962 (Version 1)
Quarter: 2022Q2

REPORT INFORMATION
  Report Type: Spontaneous
  Country: US (occurrence: US)
  Receive Date: 20220527
  Receipt Date: 20220527
  Transmission Date: 20220720
  Serious: Yes (Hospitalization)
  Sender: FDA-Public Use
  Company Number: US-BAYER-2022A072715

PATIENT
  Age: 54 Year
  Sex: Female

DRUGS (3)
  1. CALCIUM CARBONATE [Suspect]
     Active Substance: CALCIUM CARBONATE
     Indication: Gastrooesophageal reflux disease
  2. LITHIUM [Concomitant]
     Active Substance: LITHIUM
     Dosage: 300 MG, TID
  3. QUETIAPINE [Concomitant]
     Active Substance: QUETIAPINE
     Dosage: 100 MG

REACTIONS (3)
  - Milk-alkali syndrome [Recovered/Resolved]
  - Intentional product misuse [None]
  - Intentional overdose [None]
